FAERS Safety Report 11044158 (Version 2)
Quarter: 2015Q2

REPORT INFORMATION
  Report Type: Spontaneous
  Country: US (occurrence: US)
  Receive Date: 20150417
  Receipt Date: 20150617
  Transmission Date: 20150821
  Serious: No
  Sender: FDA-Public Use
  Company Number: US-PFIZER INC-2015128786

PATIENT
  Age: 61 Year
  Sex: Male
  Weight: 109 kg

DRUGS (4)
  1. XALKORI [Suspect]
     Active Substance: CRIZOTINIB
     Indication: LUNG CARCINOMA CELL TYPE UNSPECIFIED STAGE IV
     Dosage: 250 MG, 2X/DAY
     Route: 048
     Dates: start: 201312
  2. SIMVASTATIN. [Concomitant]
     Active Substance: SIMVASTATIN
     Indication: BLOOD CHOLESTEROL INCREASED
     Dosage: 40 MG, 1X/DAY
     Route: 048
  3. ARMOUR THYROID [Concomitant]
     Active Substance: THYROID, PORCINE\THYROID, UNSPECIFIED
     Indication: HYPOTHYROIDISM
     Dosage: 50 MG, 1X/DAY
     Route: 048
     Dates: start: 201412
  4. HYDROCHLOROTHIAZIDE. [Concomitant]
     Active Substance: HYDROCHLOROTHIAZIDE
     Indication: OEDEMA
     Dosage: 50 MG, 1X/DAY
     Route: 048

REACTIONS (3)
  - Influenza [Recovered/Resolved]
  - Peripheral swelling [Not Recovered/Not Resolved]
  - Vitreous floaters [Recovered/Resolved]

NARRATIVE: CASE EVENT DATE: 2014
